FAERS Safety Report 8019924-1 (Version None)
Quarter: 2012Q1

REPORT INFORMATION
  Report Type: 
  Country: None (occurrence: None)
  Receive Date: 20120103
  Receipt Date: 20111220
  Transmission Date: 20120608
  Serious: Yes (Hospitalization, Other)
  Sender: FDA-Public Use
  Company Number: GB-MYLANLABS-2011S1026061

PATIENT
  Age: 61 Year
  Sex: Male
  Weight: 87.6 kg

DRUGS (8)
  1. MELOXICAM [Suspect]
     Indication: ANALGESIC THERAPY
     Route: 048
     Dates: start: 20110113
  2. KETOROLAC TROMETHAMINE [Suspect]
     Indication: ANALGESIC THERAPY
     Route: 042
     Dates: start: 20110112, end: 20110112
  3. ALLOPURINOL [Concomitant]
     Indication: GOUT
     Route: 048
     Dates: start: 20110113
  4. ACETAMINOPHEN [Concomitant]
     Indication: ANALGESIC THERAPY
     Route: 048
     Dates: start: 20110113
  5. PRADAXA [Suspect]
     Route: 048
     Dates: end: 20110113
  6. PRADAXA [Suspect]
     Indication: THROMBOSIS PROPHYLAXIS
     Route: 048
     Dates: start: 20110112
  7. CEFUROXIME [Concomitant]
     Indication: PRODUCT USED FOR UNKNOWN INDICATION
     Route: 042
     Dates: start: 20110112, end: 20110112
  8. OXYCONTIN [Concomitant]
     Indication: ANALGESIC THERAPY
     Route: 048
     Dates: start: 20110114, end: 20110115

REACTIONS (1)
  - POST PROCEDURAL HAEMORRHAGE [None]
